FAERS Safety Report 8168420-X (Version None)
Quarter: 2012Q1

REPORT INFORMATION
  Report Type: 
  Country: None (occurrence: None)
  Receive Date: 20120227
  Receipt Date: 20120217
  Transmission Date: 20120608
  Serious: No
  Sender: FDA-Public Use
  Company Number: US-BAYER-2012-018168

PATIENT
  Age: 46 Year
  Sex: Male

DRUGS (2)
  1. GEMZAR [Concomitant]
     Indication: PANCREATIC CARCINOMA
  2. LEUKINE [Suspect]
     Indication: WHITE BLOOD CELL COUNT DECREASED
     Dosage: UNK
     Dates: start: 20120101

REACTIONS (1)
  - PYREXIA [None]
